FAERS Safety Report 5420813-7 (Version None)
Quarter: 2007Q3

REPORT INFORMATION
  Report Type: 
  Country: None (occurrence: None)
  Receive Date: 20070816
  Receipt Date: 20070803
  Transmission Date: 20080115
  Serious: Yes (Death)
  Sender: FDA-Public Use
  Company Number: CN200707006129

PATIENT
  Age: 63 Year
  Sex: Male
  Weight: 60.5 kg

DRUGS (6)
  1. GEMCITABINE HCL [Suspect]
     Indication: NON-SMALL CELL LUNG CANCER
     Dosage: 1000 MG/M2, OTHER INTRAVENOUS
     Route: 042
     Dates: start: 20060801, end: 20060914
  2. GEMCITABINE HCL [Suspect]
     Indication: NON-SMALL CELL LUNG CANCER
     Dosage: 1000 MG/M2, OTHER INTRAVENOUS
     Route: 042
     Dates: start: 20060801, end: 20060914
  3. CISPLATIN [Suspect]
     Indication: NON-SMALL CELL LUNG CANCER
     Dosage: 50 MG/M2, OTHER INTRAVENOUS
     Route: 042
     Dates: start: 20060321, end: 20060425
  4. ETOPOSIDE [Suspect]
     Indication: NON-SMALL CELL LUNG CANCER
     Dosage: 50 MG/M2, INTRAVENOUS
     Route: 042
     Dates: start: 20060321, end: 20060422
  5. RADIATION (RADIATION) [Suspect]
     Indication: NON-SMALL CELL LUNG CANCER
     Dosage: 180 DF, DAILY (1/D)
     Dates: start: 20060321, end: 20060511
  6. DOCETAXEL [Suspect]
     Dosage: 75 MG/M2, INTRAVENOUS
     Route: 042
     Dates: start: 20060801, end: 20060914

REACTIONS (2)
  - HAEMOPTYSIS [None]
  - VASCULAR RUPTURE [None]
